FAERS Safety Report 18083754 (Version 2)
Quarter: 2020Q3

REPORT INFORMATION
  Report Type: Spontaneous
  Country: GR (occurrence: GR)
  Receive Date: 20200729
  Receipt Date: 20200929
  Transmission Date: 20201103
  Serious: Yes (Other)
  Sender: FDA-Public Use
  Company Number: GR-ALKEM LABORATORIES LIMITED-GR-ALKEM-2020-03129

PATIENT
  Age: 72 Year
  Sex: Female
  Weight: 65 kg

DRUGS (1)
  1. LINEZOLID. [Suspect]
     Active Substance: LINEZOLID
     Indication: PRODUCT USED FOR UNKNOWN INDICATION
     Dosage: 600 MILLIGRAM, BID (EVERY 12 HOURS)
     Route: 042
     Dates: start: 20200201, end: 20200224

REACTIONS (7)
  - Sideroblastic anaemia [Unknown]
  - Red blood cell vacuolisation [Unknown]
  - Abdominal distension [Recovered/Resolved]
  - Pancytopenia [Unknown]
  - Toxicity to various agents [Unknown]
  - Gastrointestinal sounds abnormal [Recovered/Resolved]
  - Deafness [Recovering/Resolving]
